FAERS Safety Report 4538287-7 (Version None)
Quarter: 2004Q4

REPORT INFORMATION
  Report Type: 
  Country: None (occurrence: None)
  Receive Date: 20041223
  Receipt Date: 20041223
  Transmission Date: 20050328
  Serious: Yes (Hospitalization)
  Sender: FDA-Public Use
  Company Number: None

PATIENT
  Sex: Male
  Weight: 80 kg

DRUGS (2)
  1. DOXERCALCIFEROL [Suspect]
     Indication: PANCREATIC CARCINOMA
     Dosage: 10MCG 3X WEEK
     Dates: start: 20040818, end: 20040910
  2. DOCETAXEL [Suspect]
     Indication: PANCREATIC CARCINOMA
     Dosage: 60 MG WEEKLY
     Dates: start: 20040818, end: 20040913

REACTIONS (6)
  - BLOOD CULTURE POSITIVE [None]
  - DEHYDRATION [None]
  - EROSIVE OESOPHAGITIS [None]
  - GASTROINTESTINAL HAEMORRHAGE [None]
  - PORTAL HYPERTENSIVE GASTROPATHY [None]
  - WOUND SECRETION [None]
